FAERS Safety Report 9033655 (Version 1)
Quarter: 2013Q1

REPORT INFORMATION
  Report Type: Spontaneous
  Country: US (occurrence: US)
  Receive Date: 20130128
  Receipt Date: 20130128
  Transmission Date: 20140127
  Serious: Yes (Other)
  Sender: FDA-Public Use
  Company Number: US-AMGEN-USASP2012067611

PATIENT
  Age: 74 Year
  Sex: Male

DRUGS (1)
  1. ENBREL [Suspect]
     Indication: RHEUMATOID ARTHRITIS
     Dosage: 50 MG, QWK
     Route: 058
     Dates: start: 20060109

REACTIONS (6)
  - Angioedema [Recovered/Resolved]
  - Rash [Unknown]
  - Arthralgia [Unknown]
  - Therapeutic response decreased [Unknown]
  - Swollen tongue [Recovered/Resolved]
  - Swelling [Recovered/Resolved]
